FAERS Safety Report 12284425 (Version 1)
Quarter: 2016Q2

REPORT INFORMATION
  Report Type: Spontaneous
  Country: US (occurrence: US)
  Receive Date: 20160420
  Receipt Date: 20160420
  Transmission Date: 20160815
  Serious: No
  Sender: FDA-Public Use
  Company Number: US-ASTRAZENECA-2016SE26948

PATIENT
  Sex: Female

DRUGS (1)
  1. SYNAGIS [Suspect]
     Active Substance: PALIVIZUMAB
     Indication: RESPIRATORY SYNCYTIAL VIRUS TEST POSITIVE
     Route: 030

REACTIONS (4)
  - Regurgitation [Unknown]
  - Constipation [Unknown]
  - Secretion discharge [Unknown]
  - Spinal cord disorder [Unknown]
